FAERS Safety Report 24416529 (Version 1)
Quarter: 2024Q4

REPORT INFORMATION
  Report Type: Spontaneous
  Country: US (occurrence: None)
  Receive Date: 20241008
  Receipt Date: 20241008
  Transmission Date: 20250114
  Serious: Yes (unspecified)
  Sender: Public
  Company Number: None

PATIENT
  Age: 97 Year
  Sex: Female
  Weight: 61.2 kg

DRUGS (2)
  1. REZZAYO [Suspect]
     Active Substance: REZAFUNGIN
     Indication: Candida infection
     Dosage: OTHER FREQUENCY : ONE DOSE;?
     Route: 041
     Dates: start: 20241008, end: 20241008
  2. REZZAYO [Concomitant]
     Active Substance: REZAFUNGIN
     Dates: start: 20241008, end: 20241008

REACTIONS (4)
  - Infusion related reaction [None]
  - Flushing [None]
  - Back pain [None]
  - Arthralgia [None]

NARRATIVE: CASE EVENT DATE: 20241008
